FAERS Safety Report 5266527-8 (Version None)
Quarter: 2007Q1

REPORT INFORMATION
  Report Type: 
  Country: None (occurrence: None)
  Receive Date: 20070315
  Receipt Date: 20070308
  Transmission Date: 20070707
  Serious: Yes (Hospitalization)
  Sender: FDA-Public Use
  Company Number: IT-ROXANE LABORATORIES, INC-2007-BP-03185RO

PATIENT
  Age: 52 Year
  Sex: Female

DRUGS (3)
  1. LITHIUM CARBONATE [Suspect]
     Indication: AFFECTIVE DISORDER
     Dosage: 600 MG/DAY
     Route: 048
     Dates: start: 20030101
  2. HALOPERIDOL [Suspect]
     Indication: BIPOLAR I DISORDER
     Route: 048
     Dates: end: 20030101
  3. TRICYCLIC AGENTS [Suspect]
     Indication: BIPOLAR I DISORDER
     Route: 048
     Dates: end: 20030101

REACTIONS (10)
  - AUTOMATISM [None]
  - BRADYPHRENIA [None]
  - DEPRESSED LEVEL OF CONSCIOUSNESS [None]
  - DISORIENTATION [None]
  - GAIT DISTURBANCE [None]
  - HYPERTONIA [None]
  - MENTAL STATUS CHANGES [None]
  - SPEECH DISORDER [None]
  - STATUS EPILEPTICUS [None]
  - TREMOR [None]
